FAERS Safety Report 21555402 (Version 1)
Quarter: 2022Q4

REPORT INFORMATION
  Report Type: Spontaneous
  Country: BR (occurrence: BR)
  Receive Date: 20221104
  Receipt Date: 20221104
  Transmission Date: 20230112
  Serious: Yes (Other)
  Sender: FDA-Public Use
  Company Number: BR-JNJFOC-20221053255

PATIENT
  Sex: Male
  Weight: 70 kg

DRUGS (1)
  1. HALOPERIDOL DECANOATE [Suspect]
     Active Substance: HALOPERIDOL DECANOATE
     Indication: Schizoaffective disorder
     Dosage: 2 AMPOULES/MONTH
     Route: 030

REACTIONS (3)
  - Dystonia [Unknown]
  - Akathisia [Unknown]
  - Drug tolerance decreased [Unknown]
